FAERS Safety Report 18768721 (Version 2)
Quarter: 2023Q1

REPORT INFORMATION
  Report Type: Spontaneous
  Country: IT (occurrence: IT)
  Receive Date: 20210121
  Receipt Date: 20230321
  Transmission Date: 20230417
  Serious: Yes (Other)
  Sender: FDA-Public Use
  Company Number: IT-EMA-DD-20201230-BANAVALLI_M-145802

PATIENT
  Age: 69 Year
  Sex: Male

DRUGS (6)
  1. OXYCODONE HYDROCHLORIDE [Suspect]
     Active Substance: OXYCODONE HYDROCHLORIDE
     Indication: Aphthous ulcer
     Dosage: UNK
     Route: 065
  2. MORPHINE SULFATE [Suspect]
     Active Substance: MORPHINE SULFATE
     Indication: Aphthous ulcer
     Dosage: UNK
     Route: 065
  3. ECONAZOLE [Suspect]
     Active Substance: ECONAZOLE
     Indication: Candida infection
     Dosage: UNK
     Route: 065
  4. BLINATUMOMAB [Suspect]
     Active Substance: BLINATUMOMAB
     Indication: Acute lymphocytic leukaemia
     Dosage: UNK
     Route: 065
  5. AMOXICILLIN\CLAVULANATE POTASSIUM [Suspect]
     Active Substance: AMOXICILLIN\CLAVULANATE POTASSIUM
     Indication: Aphthous ulcer
     Dosage: UNK
     Route: 065
  6. ECONAZOLE NITRATE [Suspect]
     Active Substance: ECONAZOLE NITRATE
     Indication: Candida infection
     Dosage: UNK
     Route: 065

REACTIONS (5)
  - Drug ineffective [Recovering/Resolving]
  - Dry mouth [Recovered/Resolved]
  - Aphthous ulcer [Recovering/Resolving]
  - Candida infection [Recovering/Resolving]
  - Treatment failure [Recovered/Resolved]
